FAERS Safety Report 9491096 (Version 2)
Quarter: 2013Q4

REPORT INFORMATION
  Report Type: Report from Study
  Country: US (occurrence: US)
  Receive Date: 20130830
  Receipt Date: 20131009
  Transmission Date: 20140711
  Serious: Yes (Hospitalization, Other)
  Sender: FDA-Public Use
  Company Number: US-JNJFOC-20130814628

PATIENT
  Age: 19 Year
  Sex: Male
  Weight: 77.11 kg

DRUGS (6)
  1. REMICADE [Suspect]
     Indication: COLITIS ULCERATIVE
     Route: 042
     Dates: start: 20110911
  2. REMICADE [Suspect]
     Indication: COLITIS ULCERATIVE
     Route: 042
     Dates: start: 20130520, end: 2013
  3. REMICADE [Suspect]
     Indication: COLITIS ULCERATIVE
     Route: 042
     Dates: start: 201108
  4. REMICADE [Suspect]
     Indication: COLITIS ULCERATIVE
     Route: 042
     Dates: start: 2013
  5. METHOTREXATE [Concomitant]
     Indication: COLITIS ULCERATIVE
     Route: 048
     Dates: start: 20110829
  6. ASACOL [Concomitant]
     Indication: COLITIS ULCERATIVE
     Dosage: 1500MG/TABLET/500MG/6 TABLETS EVERY DAY; THREE IN THE MORNING AND THREE AT NIGHT/ORAL
     Route: 048
     Dates: start: 20110829

REACTIONS (7)
  - Viral upper respiratory tract infection [Recovering/Resolving]
  - Constipation [Unknown]
  - Epstein-Barr virus infection [Recovering/Resolving]
  - Haemorrhage [Unknown]
  - Tonsillitis [Recovering/Resolving]
  - Febrile infection [Recovering/Resolving]
  - Drug level decreased [Unknown]
